FAERS Safety Report 8273196-1 (Version None)
Quarter: 2012Q2

REPORT INFORMATION
  Report Type: 
  Country: None (occurrence: None)
  Receive Date: 20120411
  Receipt Date: 20120406
  Transmission Date: 20120825
  Serious: Yes (Other)
  Sender: FDA-Public Use
  Company Number: US-JNJFOC-20120403474

PATIENT
  Age: 13 Year
  Sex: Male
  Weight: 46.27 kg

DRUGS (1)
  1. BENADRYL [Suspect]
     Indication: PRURITUS
     Dosage: ON HIS STOMACH AND THE TOP PART OF HIS BACK DOWN TO THE TOP OF HIS BUTTOCKS
     Route: 061
     Dates: start: 20120101, end: 20120101

REACTIONS (3)
  - APPLICATION SITE RASH [None]
  - WRONG TECHNIQUE IN DRUG USAGE PROCESS [None]
  - EXPIRED DRUG ADMINISTERED [None]
